FAERS Safety Report 11633268 (Version 2)
Quarter: 2015Q4

REPORT INFORMATION
  Report Type: Spontaneous
  Country: CN (occurrence: CN)
  Receive Date: 20151015
  Receipt Date: 20151102
  Transmission Date: 20160304
  Serious: Yes (Other)
  Sender: FDA-Public Use
  Company Number: CN-009507513-1510CHN007084

PATIENT
  Sex: Female

DRUGS (2)
  1. MK-0000 [Suspect]
     Active Substance: INVESTIGATIONAL PRODUCT
  2. YASMIN [Suspect]
     Active Substance: DROSPIRENONE\ETHINYL ESTRADIOL
     Dosage: UNK
     Route: 048
     Dates: start: 2015

REACTIONS (4)
  - Cerebrovascular insufficiency [Unknown]
  - Menorrhagia [Recovered/Resolved]
  - Abnormal withdrawal bleeding [Unknown]
  - Diarrhoea [Unknown]

NARRATIVE: CASE EVENT DATE: 20151002
